FAERS Safety Report 22395789 (Version 1)
Quarter: 2023Q2

REPORT INFORMATION
  Report Type: Spontaneous
  Country: US (occurrence: US)
  Receive Date: 20230601
  Receipt Date: 20230601
  Transmission Date: 20230721
  Serious: No
  Sender: FDA-Public Use
  Company Number: US-BoehringerIngelheim-2023-BI-241441

PATIENT
  Age: 72 Year
  Sex: Female

DRUGS (1)
  1. JARDIANCE [Suspect]
     Active Substance: EMPAGLIFLOZIN
     Indication: Product used for unknown indication
     Dates: start: 20230301, end: 20230331

REACTIONS (1)
  - Fungal infection [Recovered/Resolved]

NARRATIVE: CASE EVENT DATE: 20230301
